FAERS Safety Report 5995292-1 (Version None)
Quarter: 2008Q4

REPORT INFORMATION
  Report Type: 
  Country: None (occurrence: None)
  Receive Date: 20081212
  Receipt Date: 20081020
  Transmission Date: 20090506
  Serious: No
  Sender: FDA-Public Use
  Company Number: US-ABBOTT-08P-163-0478335-00

PATIENT
  Sex: Female
  Weight: 72.64 kg

DRUGS (9)
  1. HUMIRA [Suspect]
     Indication: CROHN'S DISEASE
     Route: 050
     Dates: start: 20080301
  2. HUMIRA [Suspect]
  3. ENTECORT [Concomitant]
     Indication: CROHN'S DISEASE
     Route: 048
  4. HYDROCHLOROTHIAZIDE [Concomitant]
     Indication: BLOOD PRESSURE
     Route: 048
  5. RISPERIDONE [Concomitant]
     Indication: SCHIZOPHRENIA
     Route: 048
  6. OMEPRAZOLE SODIUM [Concomitant]
     Indication: GASTRIC DISORDER
     Route: 048
  7. PROPRANOLOL [Concomitant]
     Indication: CARDIAC DISORDER
     Route: 048
  8. PROGESTERONE [Concomitant]
     Indication: CARDIAC DISORDER
     Route: 048
  9. PREDNISONE TAB [Concomitant]
     Indication: CROHN'S DISEASE
     Route: 048

REACTIONS (11)
  - ANXIETY [None]
  - DRUG INEFFECTIVE [None]
  - FATIGUE [None]
  - FUNGAL INFECTION [None]
  - GLOSSODYNIA [None]
  - OROPHARYNGEAL PAIN [None]
  - PHARYNGEAL DISORDER [None]
  - PRODUCTIVE COUGH [None]
  - SINUSITIS [None]
  - SPUTUM DISCOLOURED [None]
  - TONGUE DISCOLOURATION [None]
